FAERS Safety Report 9274623 (Version 1)
Quarter: 2013Q2

REPORT INFORMATION
  Report Type: Spontaneous
  Country: US (occurrence: US)
  Receive Date: 20130507
  Receipt Date: 20130507
  Transmission Date: 20140414
  Serious: No
  Sender: FDA-Public Use
  Company Number: US-009507513-1305USA000998

PATIENT
  Age: 40 Year
  Sex: Male

DRUGS (3)
  1. PEGINTRON [Suspect]
     Indication: HEPATITIS C
     Dosage: REDIPEN
     Route: 058
     Dates: start: 20130429, end: 20130429
  2. REBETOL [Suspect]
     Route: 048
  3. TELAPREVIR [Suspect]

REACTIONS (6)
  - Tremor [Recovering/Resolving]
  - Insomnia [Recovering/Resolving]
  - Chest pain [Recovering/Resolving]
  - Palpitations [Recovering/Resolving]
  - Disorientation [Recovering/Resolving]
  - Incorrect dose administered [Unknown]
